FAERS Safety Report 8129579-3 (Version None)
Quarter: 2012Q1

REPORT INFORMATION
  Report Type: 
  Country: None (occurrence: None)
  Receive Date: 20120210
  Receipt Date: 20120201
  Transmission Date: 20120608
  Serious: Yes (Death)
  Sender: FDA-Public Use
  Company Number: US-GLAXOSMITHKLINE-A0943387A

PATIENT
  Age: 82 Year
  Sex: Male

DRUGS (2)
  1. PROMACTA [Suspect]
     Indication: THROMBOCYTOPENIA
     Dates: start: 20100930
  2. VIDAZA [Concomitant]
     Dates: end: 20100817

REACTIONS (1)
  - MYELODYSPLASTIC SYNDROME [None]
